FAERS Safety Report 12393663 (Version 2)
Quarter: 2016Q2

REPORT INFORMATION
  Report Type: Spontaneous
  Country: US (occurrence: US)
  Receive Date: 20160523
  Receipt Date: 20160613
  Transmission Date: 20160815
  Serious: Yes (Death)
  Sender: FDA-Public Use
  Company Number: US-TAIHO ONCOLOGY INC-EU-2016-01022

PATIENT
  Age: 58 Year
  Sex: Male

DRUGS (7)
  1. ATIVAN [Concomitant]
     Active Substance: LORAZEPAM
     Dosage: NI
  2. ZYPREXA [Concomitant]
     Active Substance: OLANZAPINE
     Dosage: NI
  3. HYOSCINE [Concomitant]
     Active Substance: SCOPOLAMINE
     Dosage: NI
  4. FENTANYL. [Concomitant]
     Active Substance: FENTANYL
     Dosage: NI
  5. LONSURF [Suspect]
     Active Substance: TIPIRACIL HYDROCHLORIDE\TRIFLURIDINE
     Indication: COLON CANCER
     Route: 048
     Dates: start: 20151110
  6. MEGACE [Concomitant]
     Active Substance: MEGESTROL ACETATE
     Dosage: NI
  7. ZOFRAN [Concomitant]
     Active Substance: ONDANSETRON HYDROCHLORIDE
     Dosage: NI

REACTIONS (3)
  - Asthenia [Fatal]
  - Organ failure [Fatal]
  - Disease progression [Fatal]

NARRATIVE: CASE EVENT DATE: 20160406
